FAERS Safety Report 23692555 (Version 1)
Quarter: 2024Q1

REPORT INFORMATION
  Report Type: Spontaneous
  Country: US (occurrence: None)
  Receive Date: 20240330
  Receipt Date: 20240330
  Transmission Date: 20240409
  Serious: No
  Sender: FDA-Public Use
  Company Number: None

PATIENT
  Age: 5 Year
  Sex: Female
  Weight: 20.6 kg

DRUGS (5)
  1. CALASPARGASE PEGOL-MKNL [Suspect]
     Active Substance: CALASPARGASE PEGOL-MKNL
  2. CYTARABINE [Suspect]
     Active Substance: CYTARABINE
  3. DEXAMETHASONE [Suspect]
     Active Substance: DEXAMETHASONE
  4. METHOTREXATE [Suspect]
     Active Substance: METHOTREXATE
  5. VINCRISTINE SULFATE [Suspect]
     Active Substance: VINCRISTINE SULFATE

REACTIONS (13)
  - Appendicitis perforated [None]
  - Septic shock [None]
  - Oxygen saturation decreased [None]
  - Abdominal abscess [None]
  - Blood culture positive [None]
  - Bacteroides infection [None]
  - Pseudomonas infection [None]
  - Klebsiella infection [None]
  - Bacterial sepsis [None]
  - Encephalopathy [None]
  - Bacteraemia [None]
  - Magnetic resonance imaging head abnormal [None]
  - Electroencephalogram abnormal [None]

NARRATIVE: CASE EVENT DATE: 20240222
